FAERS Safety Report 9623084 (Version 2)
Quarter: 2013Q4

REPORT INFORMATION
  Report Type: Report from Study
  Country: MX (occurrence: MX)
  Receive Date: 20131015
  Receipt Date: 20131015
  Transmission Date: 20140711
  Serious: No
  Sender: FDA-Public Use
  Company Number: MX-ABBVIE-13P-107-1107927-00

PATIENT
  Age: 59 Year
  Sex: Female

DRUGS (4)
  1. HUMIRA [Suspect]
     Indication: RHEUMATOID ARTHRITIS
     Route: 058
     Dates: start: 20130603, end: 20130617
  2. METHOTREXATE [Concomitant]
     Indication: RHEUMATOID ARTHRITIS
     Dates: start: 20130603
  3. SULINDAC [Concomitant]
     Indication: RHEUMATOID ARTHRITIS
     Dates: start: 20130603
  4. TYLEX [Concomitant]
     Indication: RHEUMATOID ARTHRITIS
     Dates: start: 20130603

REACTIONS (1)
  - Malaise [Recovered/Resolved]
